FAERS Safety Report 26000313 (Version 1)
Quarter: 2025Q4

REPORT INFORMATION
  Report Type: Spontaneous
  Country: US (occurrence: US)
  Receive Date: 20251105
  Receipt Date: 20251105
  Transmission Date: 20260117
  Serious: No
  Sender: BRISTOL-MYERS SQUIBB COMPANY
  Company Number: US-BRISTOL-MYERS SQUIBB COMPANY-2025-150172

PATIENT
  Age: 56 Year
  Sex: Female

DRUGS (2)
  1. COBENFY [Suspect]
     Active Substance: TROSPIUM CHLORIDE\XANOMELINE
     Indication: Schizophrenia
     Dosage: DOSE: 50-20 MG
     Route: 048
     Dates: start: 20251012, end: 20251018
  2. COBENFY [Suspect]
     Active Substance: TROSPIUM CHLORIDE\XANOMELINE
     Dosage: DOSE: 100-20 MG
     Route: 048
     Dates: start: 20251019

REACTIONS (2)
  - Dizziness [Not Recovered/Not Resolved]
  - Nausea [Not Recovered/Not Resolved]

NARRATIVE: CASE EVENT DATE: 20251012
